FAERS Safety Report 18173697 (Version 1)
Quarter: 2020Q3

REPORT INFORMATION
  Report Type: Spontaneous
  Country: US (occurrence: US)
  Receive Date: 20200820
  Receipt Date: 20200820
  Transmission Date: 20201103
  Serious: No
  Sender: FDA-Public Use
  Company Number: US-ASTRAZENECA-2020SF00687

PATIENT
  Age: 23051 Day
  Sex: Male
  Weight: 167.8 kg

DRUGS (2)
  1. FASENRA [Suspect]
     Active Substance: BENRALIZUMAB
     Indication: ASTHMA
     Route: 058
     Dates: start: 20200805
  2. FASENRA [Suspect]
     Active Substance: BENRALIZUMAB
     Indication: ASTHMA
     Route: 058

REACTIONS (4)
  - Drug dose omission by device [Unknown]
  - Intentional device misuse [Unknown]
  - Injection site pain [Unknown]
  - Device leakage [Unknown]

NARRATIVE: CASE EVENT DATE: 20200805
